FAERS Safety Report 9238138 (Version 2)
Quarter: 2014Q1

REPORT INFORMATION
  Report Type: Spontaneous
  Country: IT (occurrence: IT)
  Receive Date: 20130418
  Receipt Date: 20140221
  Transmission Date: 20141002
  Serious: Yes (Other)
  Sender: FDA-Public Use
  Company Number: PHHY2013IT036514

PATIENT
  Age: 79 Year
  Sex: Female

DRUGS (11)
  1. ZOMETA [Suspect]
     Indication: METASTASES TO BONE
     Dosage: 1 DF, (1 POSOLOGIC UNIT), MONTHLY.
     Route: 042
     Dates: start: 20100601, end: 20120701
  2. CITALOPRAM [Concomitant]
     Dosage: UNK UKN, UNK
  3. RANITIDINE [Concomitant]
     Dosage: UNK UKN, UNK
  4. KETOROLAC [Concomitant]
     Dosage: UNK UKN, UNK
  5. DIAZEPAM [Concomitant]
     Dosage: UNK UKN, UNK
  6. AROMASIN [Concomitant]
     Dosage: UNK UKN, UNK
  7. MICARDIS [Concomitant]
     Dosage: UNK UKN, UNK
  8. CARDURA [Concomitant]
     Dosage: UNK UKN, UNK
  9. CO-EFFERALGAN [Concomitant]
     Dosage: UNK UKN, UNK
  10. ORUDIS [Concomitant]
     Dosage: UNK UKN, UNK
  11. MATRIFEN [Concomitant]
     Dosage: UNK UKN, UNK

REACTIONS (1)
  - Osteonecrosis of jaw [Not Recovered/Not Resolved]
